FAERS Safety Report 8875759 (Version 2)
Quarter: 2013Q1

REPORT INFORMATION
  Report Type: Spontaneous
  Country: BR (occurrence: BR)
  Receive Date: 20121030
  Receipt Date: 20130314
  Transmission Date: 20140127
  Serious: No
  Sender: FDA-Public Use
  Company Number: PHHY2012BR097248

PATIENT
  Sex: Female
  Weight: 56 kg

DRUGS (1)
  1. RITALINA [Suspect]
     Indication: ATTENTION DEFICIT/HYPERACTIVITY DISORDER
     Dosage: 15 MG DAILY
     Route: 048
     Dates: start: 201205, end: 201212

REACTIONS (7)
  - Decreased immune responsiveness [Recovering/Resolving]
  - Influenza [Recovering/Resolving]
  - Depression [Recovering/Resolving]
  - Anxiety [Recovering/Resolving]
  - Pyrexia [Recovering/Resolving]
  - Disturbance in attention [Recovering/Resolving]
  - Depressed mood [Recovering/Resolving]
